FAERS Safety Report 5757314-2 (Version None)
Quarter: 2008Q2

REPORT INFORMATION
  Report Type: 
  Country: None (occurrence: None)
  Receive Date: 20080603
  Receipt Date: 20080522
  Transmission Date: 20081010
  Serious: Yes (Death)
  Sender: FDA-Public Use
  Company Number: BE-ROCHE-560639

PATIENT
  Sex: Male
  Weight: 58 kg

DRUGS (6)
  1. XELODA [Suspect]
     Indication: GASTRIC CANCER
     Dosage: 2 WEEKS THERAPY FOLLOWED BY 1 WEEK REST
     Route: 065
     Dates: start: 20080311
  2. CISPLATIN [Concomitant]
     Indication: GASTRIC CANCER
     Dosage: DOSAGE: 1X/3 WEEKS
     Dates: start: 20080311
  3. ACENTERINE [Concomitant]
     Dates: start: 20040101
  4. CORUNO [Concomitant]
     Dates: start: 19990101
  5. TILDIEM RETARD [Concomitant]
     Dates: start: 19990101
  6. PLAVIX [Concomitant]
     Indication: TRANSIENT ISCHAEMIC ATTACK
     Dates: start: 20040101

REACTIONS (2)
  - ANGINA PECTORIS [None]
  - MYOCARDIAL INFARCTION [None]
